FAERS Safety Report 18995357 (Version 2)
Quarter: 2021Q2

REPORT INFORMATION
  Report Type: Spontaneous
  Country: US (occurrence: US)
  Receive Date: 20210311
  Receipt Date: 20210624
  Transmission Date: 20210717
  Serious: No
  Sender: FDA-Public Use
  Company Number: US-DECIPHERA PHARMACEUTICALS LLC-2021US000048

PATIENT
  Sex: Female

DRUGS (2)
  1. QINLOCK [Suspect]
     Active Substance: RIPRETINIB
     Dosage: HALF THE DOSE
     Dates: start: 202103
  2. QINLOCK [Suspect]
     Active Substance: RIPRETINIB
     Indication: PRODUCT USED FOR UNKNOWN INDICATION
     Dosage: 100 MILLIGRAM, QD
     Route: 048
     Dates: start: 20201219

REACTIONS (5)
  - Confusional state [Unknown]
  - Headache [Unknown]
  - Pain [Unknown]
  - Fatigue [Unknown]
  - Underdose [Unknown]
